FAERS Safety Report 5055181-6 (Version None)
Quarter: 2006Q3

REPORT INFORMATION
  Report Type: 
  Country: None (occurrence: None)
  Receive Date: 20060714
  Receipt Date: 20060704
  Transmission Date: 20061208
  Serious: Yes (Death, Life-Threatening, Hospitalization)
  Sender: FDA-Public Use
  Company Number: HQWYE561005JUL06

PATIENT
  Age: 77 Year
  Sex: Female

DRUGS (2)
  1. PANTOPRAZOLE SODIUM [Suspect]
     Indication: GASTRIC DISORDER
     Dosage: 40 MG 1X PER 1 DAY, ORAL
     Route: 048
     Dates: start: 20060101, end: 20060201
  2. PANTOPRAZOLE SODIUM [Suspect]
     Indication: GASTROOESOPHAGEAL REFLUX DISEASE
     Dosage: 40 MG 1X PER 1 DAY, ORAL
     Route: 048
     Dates: start: 20060101, end: 20060201

REACTIONS (18)
  - BILIARY DILATATION [None]
  - CHOLESTASIS [None]
  - COAGULOPATHY [None]
  - COMA HEPATIC [None]
  - CRYPTOGENIC CIRRHOSIS [None]
  - GALLBLADDER POLYP [None]
  - GENERAL PHYSICAL HEALTH DETERIORATION [None]
  - HEPATIC ATROPHY [None]
  - HEPATIC CIRRHOSIS [None]
  - HEPATIC FAILURE [None]
  - HEPATIC FIBROSIS [None]
  - HEPATIC NECROSIS [None]
  - HEPATITIS TOXIC [None]
  - LYMPHADENOPATHY [None]
  - MALNUTRITION [None]
  - PANCREATIC DUCT DILATATION [None]
  - PLEURAL EFFUSION [None]
  - PROTHROMBIN TIME PROLONGED [None]
